FAERS Safety Report 19587069 (Version 1)
Quarter: 2021Q3

REPORT INFORMATION
  Report Type: Spontaneous
  Country: US (occurrence: US)
  Receive Date: 20210720
  Receipt Date: 20210720
  Transmission Date: 20211014
  Serious: Yes (Life-Threatening)
  Sender: FDA-Public Use
  Company Number: None

PATIENT
  Age: 79 Year
  Sex: Female

DRUGS (1)
  1. ALTEPLASE INJECTION [Suspect]
     Active Substance: ALTEPLASE
     Indication: ISCHAEMIC STROKE
     Dosage: ?          OTHER FREQUENCY:ONCE;?
     Route: 041
     Dates: start: 20210718, end: 20210718

REACTIONS (3)
  - Cerebral haemorrhage [None]
  - Loss of consciousness [None]
  - Unresponsive to stimuli [None]

NARRATIVE: CASE EVENT DATE: 20210719
